FAERS Safety Report 11865741 (Version 2)
Quarter: 2016Q1

REPORT INFORMATION
  Report Type: Spontaneous
  Country: AU (occurrence: AU)
  Receive Date: 20151223
  Receipt Date: 20160113
  Transmission Date: 20160526
  Serious: Yes (Other)
  Sender: FDA-Public Use
  Company Number: AU-GLAXOSMITHKLINE-AU2015GSK181337

PATIENT
  Age: 50 Year
  Sex: Female

DRUGS (6)
  1. LAMICTAL [Suspect]
     Active Substance: LAMOTRIGINE
     Indication: SEIZURE
     Dosage: 25 MG, UNK
     Dates: start: 201506
  2. LAMICTAL [Suspect]
     Active Substance: LAMOTRIGINE
     Dosage: 200 MG, BID
  3. LAMICTAL [Suspect]
     Active Substance: LAMOTRIGINE
     Dosage: 50 UNK, UNK
  4. TEGRETOL [Concomitant]
     Active Substance: CARBAMAZEPINE
     Dosage: 300 MG, BID
     Dates: end: 201508
  5. LAMICTAL [Suspect]
     Active Substance: LAMOTRIGINE
     Dosage: 300 MG, 1D
     Dates: end: 20151117
  6. TEGRETOL [Concomitant]
     Active Substance: CARBAMAZEPINE
     Dosage: UNK
     Dates: start: 201510

REACTIONS (4)
  - Alopecia [Not Recovered/Not Resolved]
  - Seizure [Unknown]
  - Skin reaction [Unknown]
  - Drug ineffective [Unknown]
